FAERS Safety Report 10273747 (Version 1)
Quarter: 2014Q2

REPORT INFORMATION
  Report Type: Spontaneous
  Country: FR (occurrence: None)
  Receive Date: 20140630
  Receipt Date: 20140630
  Transmission Date: 20141212
  Serious: Yes (Hospitalization)
  Sender: FDA-Public Use
  Company Number: 2405149

PATIENT
  Age: 82 Year
  Sex: Male

DRUGS (9)
  1. CARBOPLATIN [Suspect]
     Indication: PRODUCT USED FOR UNKNOWN INDICATION
     Dosage: CYCLICAL (NOT OTHERWISE SPECIFIED
     Route: 042
     Dates: start: 20100716, end: 20100716
  2. ETOPOSIDE [Suspect]
     Indication: PRODUCT USED FOR UNKNOWN INDICATION
     Dosage: NOT OTHERWISE SPECIFIED
     Route: 042
     Dates: start: 20100716, end: 20100718
  3. SERETIDE DISCUS [Concomitant]
  4. COAPROVEL [Concomitant]
  5. DELURSAN [Concomitant]
  6. SOLUPRED /00016201/ [Concomitant]
  7. DOLIPRANE [Concomitant]
  8. INNOHEP [Concomitant]
  9. NEULASTA [Concomitant]

REACTIONS (6)
  - Septic shock [None]
  - Bone marrow failure [None]
  - Pneumonia bacterial [None]
  - Hyperthermia [None]
  - Tachycardia [None]
  - Escherichia test positive [None]
